FAERS Safety Report 6908314-8 (Version None)
Quarter: 2010Q3

REPORT INFORMATION
  Report Type: 
  Country: None (occurrence: None)
  Receive Date: 20100803
  Receipt Date: 20100719
  Transmission Date: 20110219
  Serious: Yes (Hospitalization)
  Sender: FDA-Public Use
  Company Number: US-JNJFOC-20100700806

PATIENT
  Age: 23 Year
  Sex: Male
  Weight: 74 kg

DRUGS (2)
  1. DECITABINE (DECITABINE) LYOPHILIZED POWDER [Suspect]
     Indication: ACUTE MYELOID LEUKAEMIA
     Dosage: 20 MG/M2, INTRAVENOUS; INTRAVENOUS
     Route: 042
     Dates: start: 20100505, end: 20100509
  2. DECITABINE (DECITABINE) LYOPHILIZED POWDER [Suspect]
     Indication: ACUTE MYELOID LEUKAEMIA
     Dosage: 20 MG/M2, INTRAVENOUS; INTRAVENOUS
     Route: 042
     Dates: start: 20100706

REACTIONS (10)
  - ALCOHOL USE [None]
  - DECREASED APPETITE [None]
  - DIARRHOEA [None]
  - GASTRITIS [None]
  - HEADACHE [None]
  - NAUSEA [None]
  - NEUTROPENIA [None]
  - NIGHT SWEATS [None]
  - PYREXIA [None]
  - VOMITING [None]
